FAERS Safety Report 12372260 (Version 1)
Quarter: 2016Q2

REPORT INFORMATION
  Report Type: Spontaneous
  Country: IT (occurrence: IT)
  Receive Date: 20160516
  Receipt Date: 20160516
  Transmission Date: 20160815
  Serious: Yes (Hospitalization, Other)
  Sender: FDA-Public Use
  Company Number: IT-WATSON-2016-07881

PATIENT
  Age: 61 Year
  Sex: Male

DRUGS (6)
  1. ZOLPIDEM [Suspect]
     Active Substance: ZOLPIDEM\ZOLPIDEM TARTRATE
     Indication: INSOMNIA
     Dosage: 10 MG, DAILY
     Route: 065
     Dates: start: 201311, end: 201401
  2. TENOFOVIR (UNKNOWN) [Interacting]
     Active Substance: TENOFOVIR
     Indication: CHRONIC HEPATITIS B
     Dosage: 245 MG, DAILY
     Route: 065
     Dates: start: 201303, end: 201401
  3. VENLAFAXINE (UNKNOWN) [Interacting]
     Active Substance: VENLAFAXINE HYDROCHLORIDE
     Indication: DEPRESSED MOOD
     Dosage: 150 MG, DAILY
     Route: 065
     Dates: start: 201311, end: 201401
  4. INTERFERON [Concomitant]
     Active Substance: INTERFERON
     Indication: CHRONIC HEPATITIS B
     Dosage: UNK
     Route: 065
  5. VENLAFAXINE (UNKNOWN) [Interacting]
     Active Substance: VENLAFAXINE HYDROCHLORIDE
     Dosage: 75 MG, DAILY
     Route: 065
     Dates: start: 201401
  6. PAROXETINE. [Interacting]
     Active Substance: PAROXETINE
     Indication: DEPRESSED MOOD
     Dosage: 20 MG, DAILY
     Route: 065
     Dates: start: 201311, end: 201401

REACTIONS (2)
  - Drug interaction [Recovered/Resolved]
  - Hepatitis B [Recovered/Resolved]
